FAERS Safety Report 5158305-5 (Version None)
Quarter: 2006Q4

REPORT INFORMATION
  Report Type: 
  Country: None (occurrence: None)
  Receive Date: 20061117
  Receipt Date: 20061103
  Transmission Date: 20070319
  Serious: Yes (Hospitalization)
  Sender: FDA-Public Use
  Company Number: 15140

PATIENT
  Age: 70 Year
  Sex: Male
  Weight: 98 kg

DRUGS (6)
  1. FLUOROURACIL [Suspect]
     Indication: BILIARY NEOPLASM
     Dosage: 375 MG/M2 QD IV
     Route: 042
     Dates: start: 20061017
  2. LEUCOVORIN. MFR: MAYNE [Suspect]
     Indication: BILIARY NEOPLASM
     Dosage: 25 MG/M2 QD IV
     Route: 042
     Dates: start: 20061017
  3. ZOLPIDEM TARTRATE [Concomitant]
  4. DILTIAZEM HCL [Concomitant]
  5. DIGOXIN [Concomitant]
  6. ACETYLSALICYLIC ACID SRT [Concomitant]

REACTIONS (1)
  - ACUTE PULMONARY OEDEMA [None]
